FAERS Safety Report 4917328-9 (Version None)
Quarter: 2006Q1

REPORT INFORMATION
  Report Type: 
  Country: None (occurrence: None)
  Receive Date: 20060216
  Receipt Date: 20060216
  Transmission Date: 20060701
  Serious: No
  Sender: FDA-Public Use
  Company Number: None

PATIENT
  Sex: Male
  Weight: 104 kg

DRUGS (1)
  1. INTRON A [Suspect]
     Indication: RENAL CELL CARCINOMA STAGE UNSPECIFIED
     Dosage: 72 MILLION IU
     Dates: end: 20060210

REACTIONS (4)
  - AFFECT LABILITY [None]
  - AGGRESSION [None]
  - ANGER [None]
  - IRRITABILITY [None]
